FAERS Safety Report 4450699-9 (Version None)
Quarter: 2004Q3

REPORT INFORMATION
  Report Type: 
  Country: None (occurrence: None)
  Receive Date: 20040914
  Receipt Date: 20040914
  Transmission Date: 20050211
  Serious: Yes (Hospitalization)
  Sender: FDA-Public Use
  Company Number: None

PATIENT
  Age: 83 Year
  Sex: Female
  Weight: 46.7205 kg

DRUGS (11)
  1. LISINOPRIL [Suspect]
     Indication: HYPERTENSION
     Dosage: 10 MG QD PO
     Route: 048
     Dates: start: 20040517, end: 20040521
  2. ATENOLOL [Concomitant]
  3. HYDROCHLOROTHIAZIDE [Concomitant]
  4. LOXAPINE [Concomitant]
  5. CITALOPRAM [Concomitant]
  6. ALENDRONATE SODIUM [Concomitant]
  7. CALCIUM / VIT D [Concomitant]
  8. PREMARIN [Concomitant]
  9. RANITIDINE [Concomitant]
  10. ASPIRIN [Concomitant]
  11. DOCUSATE [Concomitant]

REACTIONS (3)
  - ANGIONEUROTIC OEDEMA [None]
  - BLOOD PRESSURE SYSTOLIC INCREASED [None]
  - DIZZINESS [None]
